FAERS Safety Report 5624423-8 (Version None)
Quarter: 2008Q1

REPORT INFORMATION
  Report Type: 
  Country: None (occurrence: None)
  Receive Date: 20080213
  Receipt Date: 20080206
  Transmission Date: 20080703
  Serious: Yes (Hospitalization)
  Sender: FDA-Public Use
  Company Number: DE-JNJFOC-20080201809

PATIENT
  Sex: Female

DRUGS (1)
  1. REMICADE [Suspect]
     Indication: COLITIS ULCERATIVE
     Dosage: WEEK 0, WEEK 2 AND WEEK 6
     Route: 042

REACTIONS (2)
  - BRAIN ABSCESS [None]
  - HEMIPARESIS [None]
